FAERS Safety Report 10397315 (Version 1)
Quarter: 2014Q3

REPORT INFORMATION
  Report Type: Spontaneous
  Country: IN (occurrence: IN)
  Receive Date: 20140820
  Receipt Date: 20140820
  Transmission Date: 20150326
  Serious: Yes (Hospitalization)
  Sender: FDA-Public Use
  Company Number: PHHY2014IN101243

PATIENT
  Age: 55 Year
  Sex: Male

DRUGS (4)
  1. STATIN [Concomitant]
     Active Substance: UNSPECIFIED INGREDIENT
  2. CARBAMAZEPINE. [Concomitant]
     Active Substance: CARBAMAZEPINE
     Dosage: 1000 MG, UNK
  3. RAMIPRIL. [Suspect]
     Active Substance: RAMIPRIL
  4. LITHIUM CARBONATE. [Interacting]
     Active Substance: LITHIUM CARBONATE
     Indication: BIPOLAR DISORDER

REACTIONS (10)
  - Heart rate decreased [Unknown]
  - Dizziness [Unknown]
  - Syncope [Unknown]
  - Bradyarrhythmia [Unknown]
  - Toxicity to various agents [Unknown]
  - Blood pressure decreased [Unknown]
  - Sick sinus syndrome [Unknown]
  - Drug interaction [Unknown]
  - Vomiting [Unknown]
  - Sinus arrest [Unknown]
